FAERS Safety Report 20559874 (Version 1)
Quarter: 2022Q1

REPORT INFORMATION
  Report Type: Spontaneous
  Country: US (occurrence: None)
  Receive Date: 20220304
  Receipt Date: 20220304
  Transmission Date: 20220423
  Serious: Yes (Hospitalization)
  Sender: FDA-Public Use
  Company Number: None

PATIENT
  Age: 17 Year
  Sex: Male
  Weight: 47 kg

DRUGS (2)
  1. PEGASPARGASE [Suspect]
     Active Substance: PEGASPARGASE
     Indication: Leukaemia
     Dosage: FREQUENCY : ONCE;?
     Route: 042
     Dates: start: 20220103, end: 20220103
  2. VINCRISTINE [Concomitant]
     Active Substance: VINCRISTINE
     Dates: start: 20220103, end: 20220103

REACTIONS (8)
  - Infusion related reaction [None]
  - Eye swelling [None]
  - Rash [None]
  - Lip swelling [None]
  - Swelling face [None]
  - Rash [None]
  - Photophobia [None]
  - Anaphylactic reaction [None]

NARRATIVE: CASE EVENT DATE: 20220103
